FAERS Safety Report 6192153-2 (Version None)
Quarter: 2009Q2

REPORT INFORMATION
  Report Type: 
  Country: None (occurrence: None)
  Receive Date: 20090515
  Receipt Date: 20090504
  Transmission Date: 20091009
  Serious: Yes (Other)
  Sender: FDA-Public Use
  Company Number: PHHY2009CA17325

PATIENT
  Sex: Female

DRUGS (1)
  1. CLOZARIL [Suspect]
     Indication: SCHIZOPHRENIA
     Dosage: UNK
     Dates: start: 20001004

REACTIONS (5)
  - CHEST PAIN [None]
  - DRUG TOXICITY [None]
  - EAR INFECTION [None]
  - NAUSEA [None]
  - VOMITING [None]
